FAERS Safety Report 14415745 (Version 1)
Quarter: 2018Q1

REPORT INFORMATION
  Report Type: Spontaneous
  Country: FR (occurrence: FR)
  Receive Date: 20180122
  Receipt Date: 20180122
  Transmission Date: 20180509
  Serious: Yes (Hospitalization)
  Sender: FDA-Public Use
  Company Number: FR-MERCK KGAA-2040451

PATIENT
  Age: 59 Year
  Sex: Female
  Weight: 82 kg

DRUGS (11)
  1. DIFFU K [Concomitant]
     Active Substance: POTASSIUM CHLORIDE
  2. ESOMEPRAZOLE [Concomitant]
     Active Substance: ESOMEPRAZOLE
  3. NOVOTHYROX [Suspect]
     Active Substance: LEVOTHYROXINE SODIUM
     Indication: HYPOTHYROIDISM
     Route: 048
     Dates: start: 20170503
  4. CORTISONE ACETATE. [Concomitant]
     Active Substance: CORTISONE ACETATE
  5. COUMADINE [Concomitant]
     Active Substance: WARFARIN SODIUM
  6. CORTANCYL [Concomitant]
     Active Substance: PREDNISONE
  7. ZYMAD [Concomitant]
     Active Substance: CHOLECALCIFEROL
  8. LASILIX SPECIAL [Concomitant]
     Active Substance: FUROSEMIDE
  9. ALDACTONE [Concomitant]
     Active Substance: SPIRONOLACTONE
  10. ESIDREX [Concomitant]
     Active Substance: HYDROCHLOROTHIAZIDE
  11. CANDESARTAN SANDOZ [Concomitant]
     Active Substance: CANDESARTAN

REACTIONS (9)
  - Muscle spasms [Not Recovered/Not Resolved]
  - Blood thyroid stimulating hormone increased [Not Recovered/Not Resolved]
  - Oedema peripheral [Not Recovered/Not Resolved]
  - Pain [Not Recovered/Not Resolved]
  - Weight increased [Not Recovered/Not Resolved]
  - Alopecia [Not Recovered/Not Resolved]
  - Nephrotic syndrome [Not Recovered/Not Resolved]
  - Insomnia [Not Recovered/Not Resolved]
  - Palpitations [Not Recovered/Not Resolved]

NARRATIVE: CASE EVENT DATE: 201705
